FAERS Safety Report 11632794 (Version 3)
Quarter: 2016Q1

REPORT INFORMATION
  Report Type: Spontaneous
  Country: JP (occurrence: JP)
  Receive Date: 20151015
  Receipt Date: 20160310
  Transmission Date: 20160525
  Serious: Yes (Hospitalization)
  Sender: FDA-Public Use
  Company Number: JP-MALLINCKRODT-T201504808

PATIENT
  Age: 59 Year
  Sex: Female
  Weight: 44 kg

DRUGS (9)
  1. HYSRON H [Concomitant]
     Dosage: 600 MG
     Route: 048
  2. LOXONIN [Concomitant]
     Active Substance: LOXOPROFEN SODIUM
     Indication: ANALGESIC THERAPY
     Dosage: 60 MG
     Route: 048
     Dates: start: 20140127, end: 20140211
  3. HYPEN [Concomitant]
     Active Substance: ETODOLAC
     Indication: ANALGESIC THERAPY
     Dosage: 200 - 600 MG
     Route: 048
     Dates: start: 20140212, end: 20140311
  4. CALONAL [Concomitant]
     Active Substance: ACETAMINOPHEN
     Indication: ANALGESIC THERAPY
     Dosage: 600 MG
     Route: 048
     Dates: start: 20140312, end: 20140316
  5. VOLTAREN [Concomitant]
     Active Substance: DICLOFENAC SODIUM
     Indication: ANALGESIC THERAPY
     Dosage: 25 - 50 MG
     Route: 054
     Dates: end: 20140311
  6. NEXIUM [Concomitant]
     Active Substance: ESOMEPRAZOLE MAGNESIUM
     Dosage: 20 MG
     Route: 048
     Dates: end: 20140311
  7. METHADONE [Suspect]
     Active Substance: METHADONE HYDROCHLORIDE
     Dosage: 5 MG, (15 MG DAILY DOSE)
     Route: 048
     Dates: start: 20140213, end: 20140316
  8. METHADONE [Suspect]
     Active Substance: METHADONE HYDROCHLORIDE
     Indication: CANCER PAIN
     Dosage: 5 MG, (10 MG DAILY DOSE)
     Route: 048
     Dates: start: 20140127, end: 20140212
  9. MIYA-BM [Concomitant]
     Active Substance: CLOSTRIDIUM BUTYRICUM SPORES STRAIN M-55
     Dosage: 6 DF
     Route: 048
     Dates: start: 20140127, end: 20140311

REACTIONS (5)
  - Dehydration [Recovered/Resolved]
  - Ileus [Not Recovered/Not Resolved]
  - Melaena [Recovered/Resolved]
  - Iron deficiency anaemia [Recovered/Resolved]
  - Diarrhoea [Recovering/Resolving]

NARRATIVE: CASE EVENT DATE: 20140210
